FAERS Safety Report 9999629 (Version 2)
Quarter: 2014Q1

REPORT INFORMATION
  Report Type: Spontaneous
  Country: AT (occurrence: AT)
  Receive Date: 20140312
  Receipt Date: 20140331
  Transmission Date: 20141002
  Serious: Yes (Hospitalization, Other)
  Sender: FDA-Public Use
  Company Number: AT-TEVA-468267ISR

PATIENT
  Age: 74 Year
  Sex: Male
  Weight: 120 kg

DRUGS (13)
  1. ALPRAZOLAM [Suspect]
     Dosage: .5 MILLIGRAM DAILY; 0.5MG DAILY
     Dates: start: 20140124
  2. TRANSTEC 35 MICROGRAMM/H TRANSDERMALES PFLASTER [Suspect]
     Indication: SCIATICA
     Dosage: 35 MICROGRAM/HOUR
     Dates: start: 20140124, end: 20140127
  3. DOGMATIL [Suspect]
     Dosage: 50 MILLIGRAM DAILY;
  4. SEROXAT [Suspect]
     Dosage: 20 MILLIGRAM DAILY;
     Dates: start: 20140124
  5. SOTAHEXAL [Concomitant]
     Dosage: 160 MILLIGRAM DAILY;
     Dates: start: 20140124
  6. TEBOFORTAN [Concomitant]
     Dates: start: 20140124
  7. THROMBO ASS [Concomitant]
     Dosage: 100 MILLIGRAM DAILY;
     Dates: start: 20140124
  8. VERTIROSAN [Concomitant]
     Dates: start: 20140124
  9. AMARYL [Concomitant]
     Dosage: 2 MILLIGRAM DAILY;
     Dates: start: 20140124
  10. ACEMIN [Concomitant]
     Dosage: 20 MILLIGRAM DAILY;
     Dates: start: 20140124
  11. AMLODIPINE [Concomitant]
     Dosage: 5 MILLIGRAM DAILY;
     Dates: start: 20140124
  12. HYLO COMOD [Concomitant]
     Dates: start: 20140124
  13. FURADANTIN [Concomitant]
     Indication: URINARY TRACT INFECTION
     Dates: start: 20140127

REACTIONS (2)
  - Agitation [Not Recovered/Not Resolved]
  - Delirium [Not Recovered/Not Resolved]
